FAERS Safety Report 24345417 (Version 1)
Quarter: 2024Q3

REPORT INFORMATION
  Report Type: Spontaneous
  Country: US (occurrence: None)
  Receive Date: 20240920
  Receipt Date: 20240920
  Transmission Date: 20241017
  Serious: Yes (Life-Threatening, Hospitalization)
  Sender: Public
  Company Number: None

PATIENT
  Age: 41 Year
  Sex: Female
  Weight: 56.4 kg

DRUGS (4)
  1. RECLAST [Suspect]
     Active Substance: ZOLEDRONIC ACID
  2. CENOBAMATE [Concomitant]
     Active Substance: CENOBAMATE
  3. PHENOBARBITAL [Concomitant]
     Active Substance: PHENOBARBITAL
  4. PRUCALOPRIDE SUCCINATE [Concomitant]
     Active Substance: PRUCALOPRIDE SUCCINATE

REACTIONS (5)
  - Pneumonia [None]
  - Seizure [None]
  - Respiratory failure [None]
  - Infusion related reaction [None]
  - Hypoxia [None]

NARRATIVE: CASE EVENT DATE: 20240912
